FAERS Safety Report 18689142 (Version 2)
Quarter: 2021Q3

REPORT INFORMATION
  Report Type: Spontaneous
  Country: US (occurrence: US)
  Receive Date: 20201231
  Receipt Date: 20210811
  Transmission Date: 20211014
  Serious: No
  Sender: FDA-Public Use
  Company Number: US-VERTEX PHARMACEUTICALS-2020-025484

PATIENT
  Sex: Female

DRUGS (4)
  1. PREDNISONE. [Concomitant]
     Active Substance: PREDNISONE
     Dosage: 4 MG, QD
  2. KALYDECO [Suspect]
     Active Substance: IVACAFTOR
     Dosage: 150 MG TWICE DAILY ON ALTERNATE DAYS (REDUCED DOSE)
     Route: 048
     Dates: start: 20210608
  3. KALYDECO [Suspect]
     Active Substance: IVACAFTOR
     Indication: CYSTIC FIBROSIS
     Dosage: 150 MG
     Route: 048
     Dates: start: 20201203
  4. CELEBREX [Concomitant]
     Active Substance: CELECOXIB
     Dosage: 200 MG, PRN

REACTIONS (3)
  - Sinus disorder [Unknown]
  - Suffocation feeling [Unknown]
  - Lung disorder [Unknown]
